FAERS Safety Report 8836384 (Version 3)
Quarter: 2014Q3

REPORT INFORMATION
  Report Type: Spontaneous
  Country: US (occurrence: US)
  Receive Date: 20121011
  Receipt Date: 20140701
  Transmission Date: 20150326
  Serious: Yes (Hospitalization, Disabling, Other)
  Sender: FDA-Public Use
  Company Number: US-009507513-1210USA003146

PATIENT
  Sex: Female
  Weight: 56.24 kg

DRUGS (1)
  1. FOSAMAX [Suspect]
     Active Substance: ALENDRONATE SODIUM
     Indication: OSTEOPENIA
     Dosage: 70 MG, QW
     Route: 048
     Dates: start: 200104, end: 200806

REACTIONS (14)
  - Intramedullary rod insertion [Unknown]
  - Vitamin D deficiency [Unknown]
  - Osteoporosis [Unknown]
  - Gastrooesophageal reflux disease [Unknown]
  - Osteonecrosis [Unknown]
  - Hypertension [Unknown]
  - Femur fracture [Not Recovered/Not Resolved]
  - Foot fracture [Unknown]
  - Calcium deficiency [Unknown]
  - Surgery [Unknown]
  - Foot fracture [Unknown]
  - Gastritis [Unknown]
  - Adverse event [Unknown]
  - Bursitis [Unknown]

NARRATIVE: CASE EVENT DATE: 2004
